FAERS Safety Report 17346868 (Version 1)
Quarter: 2020Q1

REPORT INFORMATION
  Report Type: Spontaneous
  Country: JP (occurrence: JP)
  Receive Date: 20200130
  Receipt Date: 20200130
  Transmission Date: 20200409
  Serious: Yes (Other)
  Sender: FDA-Public Use
  Company Number: JP-ACCORD-171082

PATIENT
  Age: 30 Year
  Sex: Female

DRUGS (2)
  1. IRINOTECAN [Suspect]
     Active Substance: IRINOTECAN
     Indication: CARCINOID TUMOUR
  2. PACLITAXEL. [Suspect]
     Active Substance: PACLITAXEL
     Indication: CARCINOID TUMOUR
     Dosage: NAB-PACLITAXEL

REACTIONS (2)
  - Cholangitis [Unknown]
  - Therapeutic response decreased [Unknown]
